FAERS Safety Report 7626907-X (Version None)
Quarter: 2011Q3

REPORT INFORMATION
  Report Type: 
  Country: None (occurrence: None)
  Receive Date: 20110721
  Receipt Date: 20110701
  Transmission Date: 20111222
  Serious: No
  Sender: FDA-Public Use
  Company Number: US-BAYER-2011-057802

PATIENT

DRUGS (1)
  1. BETASERON [Suspect]
     Dosage: 0.3 MG, UNK

REACTIONS (3)
  - INFLUENZA LIKE ILLNESS [None]
  - CHILLS [None]
  - PYREXIA [None]
